FAERS Safety Report 16636474 (Version 11)
Quarter: 2021Q2

REPORT INFORMATION
  Report Type: Spontaneous
  Country: US (occurrence: US)
  Receive Date: 20190726
  Receipt Date: 20210609
  Transmission Date: 20210716
  Serious: No
  Sender: FDA-Public Use
  Company Number: US-PFIZER INC-2019258115

PATIENT
  Age: 64 Year
  Sex: Male
  Weight: 80 kg

DRUGS (3)
  1. LYRICA [Suspect]
     Active Substance: PREGABALIN
     Indication: DYSTONIA
     Dosage: 50 MG, 3X/DAY
     Dates: start: 2018
  2. LYRICA [Suspect]
     Active Substance: PREGABALIN
     Indication: TORTICOLLIS
     Dosage: 50 MG, 2X/DAY
  3. KLONOPIN [Concomitant]
     Active Substance: CLONAZEPAM
     Dosage: UNK
     Dates: start: 2010

REACTIONS (9)
  - Drug ineffective for unapproved indication [Unknown]
  - Insomnia [Unknown]
  - Asthenia [Unknown]
  - Weight increased [Recovered/Resolved]
  - Fear [Unknown]
  - Off label use [Unknown]
  - Drug effective for unapproved indication [Unknown]
  - Intentional product use issue [Unknown]
  - Hypoacusis [Unknown]

NARRATIVE: CASE EVENT DATE: 2018
